FAERS Safety Report 6336144-7 (Version None)
Quarter: 2009Q3

REPORT INFORMATION
  Report Type: 
  Country: None (occurrence: None)
  Receive Date: 20090828
  Receipt Date: 20090818
  Transmission Date: 20100115
  Serious: Yes (Hospitalization)
  Sender: FDA-Public Use
  Company Number: ADR14052009

PATIENT
  Age: 36 Year
  Sex: Male

DRUGS (9)
  1. CITALOPRAM HYDROBROMIDE [Suspect]
     Indication: DEPRESSION
     Dosage: ORAL
     Route: 048
  2. ATRACURIUM [Concomitant]
  3. FENTANYL CITRATE [Concomitant]
  4. GLYCOPYRRONIUM [Concomitant]
  5. ISOFLURANE [Concomitant]
  6. KETOROLAC TROMETHAMINE [Concomitant]
  7. NEOSTIGMINE [Concomitant]
  8. NITROUS OXIDE [Concomitant]
  9. THIOPENTAL SODIUM [Concomitant]

REACTIONS (3)
  - COMA [None]
  - CONVERSION DISORDER [None]
  - DELAYED RECOVERY FROM ANAESTHESIA [None]
